FAERS Safety Report 25125488 (Version 2)
Quarter: 2025Q3

REPORT INFORMATION
  Report Type: Spontaneous
  Country: GB (occurrence: GB)
  Receive Date: 20250326
  Receipt Date: 20250911
  Transmission Date: 20251021
  Serious: Yes (Hospitalization)
  Sender: MYLAN
  Company Number: GB-MYLANLABS-2024M1109258

PATIENT
  Sex: Male

DRUGS (3)
  1. CLOZARIL [Suspect]
     Active Substance: CLOZAPINE
     Indication: Schizophrenia
     Dates: start: 20031027, end: 20241122
  2. CLOZARIL [Suspect]
     Active Substance: CLOZAPINE
     Dosage: UNK, BID
     Dates: end: 20250610
  3. PALIPERIDONE [Concomitant]
     Active Substance: PALIPERIDONE

REACTIONS (6)
  - Schizophrenia [Unknown]
  - Fear of injection [Unknown]
  - Malaise [Unknown]
  - Urinary tract infection [Unknown]
  - Agitation [Unknown]
  - Treatment noncompliance [Unknown]
